FAERS Safety Report 15164950 (Version 1)
Quarter: 2018Q3

REPORT INFORMATION
  Report Type: Spontaneous
  Country: US (occurrence: US)
  Receive Date: 20180719
  Receipt Date: 20180719
  Transmission Date: 20181010
  Serious: No
  Sender: FDA-Public Use
  Company Number: US-BAYER-2018-132931

PATIENT
  Age: 50 Year
  Sex: Female

DRUGS (1)
  1. CLIMARA PRO [Suspect]
     Active Substance: ESTRADIOL\LEVONORGESTREL
     Indication: MENOPAUSAL DISORDER
     Dosage: UNK
     Route: 062
     Dates: start: 20180709

REACTIONS (3)
  - Product adhesion issue [Unknown]
  - Hot flush [Unknown]
  - Frustration tolerance decreased [Unknown]

NARRATIVE: CASE EVENT DATE: 20180709
